FAERS Safety Report 7057736-6 (Version None)
Quarter: 2010Q4

REPORT INFORMATION
  Report Type: 
  Country: None (occurrence: None)
  Receive Date: 20101022
  Receipt Date: 20101012
  Transmission Date: 20110411
  Serious: Yes (Other)
  Sender: FDA-Public Use
  Company Number: CA-JNJFOC-20101003847

PATIENT
  Sex: Female
  Weight: 61.69 kg

DRUGS (7)
  1. REMICADE [Suspect]
     Indication: RHEUMATOID ARTHRITIS
     Route: 042
  2. COUMADIN [Concomitant]
  3. METHOTREXATE [Concomitant]
  4. AMIODARONE HCL [Concomitant]
  5. FOLIC ACID [Concomitant]
  6. SYNTHROID [Concomitant]
  7. LIPITOR [Concomitant]

REACTIONS (4)
  - CELLULITIS [None]
  - HAEMATOMA [None]
  - INFECTION [None]
  - LIMB INJURY [None]
